FAERS Safety Report 4800084-2 (Version None)
Quarter: 2005Q4

REPORT INFORMATION
  Report Type: 
  Country: None (occurrence: None)
  Receive Date: 20051017
  Receipt Date: 20050610
  Transmission Date: 20060501
  Serious: Yes (Hospitalization, Other)
  Sender: FDA-Public Use
  Company Number: 200512120FR

PATIENT
  Age: 45 Year
  Sex: Female
  Weight: 69 kg

DRUGS (2)
  1. TAXOTERE [Suspect]
     Indication: BREAST CANCER
     Route: 042
     Dates: start: 20041101, end: 20041201
  2. OMEPRAZOLE [Concomitant]
     Indication: ABDOMINAL PAIN UPPER

REACTIONS (11)
  - ALLODYNIA [None]
  - ARTHRALGIA [None]
  - BLADDER DIVERTICULUM [None]
  - BONE PAIN [None]
  - CREATININE RENAL CLEARANCE DECREASED [None]
  - DYSTHYMIC DISORDER [None]
  - NEPHRITIS [None]
  - NEUTROPENIA [None]
  - PALMAR-PLANTAR ERYTHRODYSAESTHESIA SYNDROME [None]
  - POLYNEUROPATHY [None]
  - URINARY TRACT INFECTION [None]
